FAERS Safety Report 5097140-3 (Version None)
Quarter: 2006Q3

REPORT INFORMATION
  Report Type: 
  Country: None (occurrence: None)
  Receive Date: 20060824
  Receipt Date: 20060815
  Transmission Date: 20061208
  Serious: Yes (Other)
  Sender: FDA-Public Use
  Company Number: B0435156A

PATIENT
  Age: 30 Year
  Sex: Female

DRUGS (4)
  1. PAXIL [Suspect]
     Indication: PANIC ATTACK
  2. INFLIXIMAB INFUSION (INFLIXIMAB) [Suspect]
     Indication: CROHN'S DISEASE
     Dosage: 5 MG/KG / INTRAVENOUS
     Route: 042
  3. AZATHIOPRINE [Concomitant]
  4. BROMAZEPAM [Concomitant]

REACTIONS (3)
  - DRUG TOXICITY [None]
  - INTENTIONAL OVERDOSE [None]
  - THERAPY NON-RESPONDER [None]
